FAERS Safety Report 25723760 (Version 1)
Quarter: 2025Q3

REPORT INFORMATION
  Report Type: Spontaneous
  Country: US (occurrence: US)
  Receive Date: 20250825
  Receipt Date: 20250825
  Transmission Date: 20251021
  Serious: No
  Sender: BRISTOL-MYERS SQUIBB COMPANY
  Company Number: US-BRISTOL-MYERS SQUIBB COMPANY-2025-117770

PATIENT
  Age: 73 Year
  Sex: Male
  Weight: 122.47 kg

DRUGS (2)
  1. THALOMID [Suspect]
     Active Substance: THALIDOMIDE
     Indication: Rectal haemorrhage
     Route: 048
     Dates: start: 2024
  2. THALOMID [Suspect]
     Active Substance: THALIDOMIDE
     Route: 048

REACTIONS (2)
  - Lymphoedema [Unknown]
  - Off label use [Unknown]

NARRATIVE: CASE EVENT DATE: 20240101
